FAERS Safety Report 18051926 (Version 1)
Quarter: 2020Q3

REPORT INFORMATION
  Report Type: Spontaneous
  Country: ES (occurrence: ES)
  Receive Date: 20200722
  Receipt Date: 20200722
  Transmission Date: 20201104
  Serious: Yes (Hospitalization)
  Sender: FDA-Public Use
  Company Number: ES-TEVA-2020-ES-1802272

PATIENT
  Age: 65 Year
  Sex: Male
  Weight: 85.5 kg

DRUGS (4)
  1. CICLOFOSFAMIDA (120A) [Suspect]
     Active Substance: CYCLOPHOSPHAMIDE
     Indication: DIFFUSE LARGE B-CELL LYMPHOMA
     Route: 042
     Dates: start: 20191227, end: 20191227
  2. VINCRISTINA (809A) [Suspect]
     Active Substance: VINCRISTINE SULFATE
     Indication: DIFFUSE LARGE B-CELL LYMPHOMA
     Route: 042
     Dates: start: 20191227, end: 20191227
  3. DOXORUBICINA (202A) [Suspect]
     Active Substance: DOXORUBICIN HYDROCHLORIDE
     Indication: DIFFUSE LARGE B-CELL LYMPHOMA
     Route: 042
     Dates: start: 20191227, end: 20191227
  4. MOSUNETUZUMAB. [Suspect]
     Active Substance: MOSUNETUZUMAB
     Indication: DIFFUSE LARGE B-CELL LYMPHOMA
     Route: 065
     Dates: start: 20191227, end: 20191227

REACTIONS (1)
  - Hepatocellular injury [Recovered/Resolved]

NARRATIVE: CASE EVENT DATE: 20191228
